FAERS Safety Report 5177301-5 (Version None)
Quarter: 2006Q4

REPORT INFORMATION
  Report Type: 
  Country: None (occurrence: None)
  Receive Date: 20061218
  Receipt Date: 20061206
  Transmission Date: 20070319
  Serious: Yes (Other)
  Sender: FDA-Public Use
  Company Number: 2006AP05919

PATIENT
  Age: 42 Year
  Sex: Male

DRUGS (3)
  1. LIDOCAINE [Suspect]
     Indication: EPIDURAL ANAESTHESIA
     Route: 037
  2. BETAMETHASONE [Concomitant]
     Route: 008
  3. ISOTONIC SODIUM CHLORIDE SOLUTION [Concomitant]

REACTIONS (2)
  - RETINAL HAEMORRHAGE [None]
  - VITREOUS HAEMORRHAGE [None]
